FAERS Safety Report 5772854-8 (Version None)
Quarter: 2008Q2

REPORT INFORMATION
  Report Type: 
  Country: None (occurrence: None)
  Receive Date: 20080613
  Receipt Date: 20080602
  Transmission Date: 20081010
  Serious: Yes (Other)
  Sender: FDA-Public Use
  Company Number: JP-PFIZER INC-2008040105

PATIENT
  Sex: Male

DRUGS (11)
  1. GABAPEN [Suspect]
     Indication: PAIN IN EXTREMITY
     Dosage: DAILY DOSE:1200MG
     Route: 048
  2. PROGRAF [Suspect]
     Route: 048
  3. URSO 250 [Concomitant]
     Route: 048
  4. PREDONINE [Concomitant]
  5. DEPAS [Concomitant]
     Route: 048
  6. MEXITIL [Concomitant]
     Route: 048
  7. ALLOPURINOL [Concomitant]
     Route: 048
  8. PYRINAZIN [Concomitant]
     Route: 048
  9. BUSCOPAN [Concomitant]
     Route: 048
  10. BIOFERMIN [Concomitant]
     Route: 048
  11. RABEPRAZOLE SODIUM [Concomitant]
     Route: 048

REACTIONS (3)
  - BLOOD GLUCOSE INCREASED [None]
  - GLYCOSYLATED HAEMOGLOBIN INCREASED [None]
  - WEIGHT INCREASED [None]
